FAERS Safety Report 5270488-5 (Version None)
Quarter: 2007Q1

REPORT INFORMATION
  Report Type: 
  Country: None (occurrence: None)
  Receive Date: 20070320
  Receipt Date: 20070316
  Transmission Date: 20070707
  Serious: Yes (Hospitalization)
  Sender: FDA-Public Use
  Company Number: AU-MERCK-0703AUS00068

PATIENT
  Age: 66 Year
  Sex: Female

DRUGS (10)
  1. FOSAMAX PLUS D [Suspect]
     Indication: OSTEOPOROSIS
     Route: 048
     Dates: start: 20061101
  2. ATENOLOL [Concomitant]
     Indication: CARDIAC DISORDER
     Route: 065
  3. VASOTEC [Concomitant]
     Indication: HYPERTENSION
     Route: 048
  4. CLOPIDOGREL BISULFATE [Concomitant]
     Indication: ANTICOAGULANT THERAPY
     Route: 065
     Dates: start: 20050101
  5. NICORANDIL [Concomitant]
     Indication: CARDIAC DISORDER
     Route: 065
  6. AMLODIPINE BESYLATE [Concomitant]
     Indication: CARDIAC DISORDER
     Route: 065
  7. ATORVASTATIN CALCIUM [Concomitant]
     Route: 065
  8. ESTROGENS (UNSPECIFIED) [Concomitant]
     Indication: HORMONE REPLACEMENT THERAPY
     Route: 061
  9. CALCIUM CARBONATE [Concomitant]
     Route: 065
  10. MAGNESIUM (UNSPECIFIED) [Concomitant]
     Route: 065

REACTIONS (4)
  - CHEST DISCOMFORT [None]
  - DIZZINESS [None]
  - FATIGUE [None]
  - NAUSEA [None]
